FAERS Safety Report 8380588-9 (Version None)
Quarter: 2012Q2

REPORT INFORMATION
  Report Type: 
  Country: None (occurrence: None)
  Receive Date: 20120514
  Receipt Date: 20120508
  Transmission Date: 20120825
  Serious: Yes (Hospitalization)
  Sender: FDA-Public Use
  Company Number: 2012031623

PATIENT
  Age: 54 Year
  Sex: Female
  Weight: 95.2554 kg

DRUGS (10)
  1. FLEXERIL [Concomitant]
  2. PROZAC [Concomitant]
  3. TRAMADOL HCL [Concomitant]
  4. COREG [Concomitant]
  5. GABAPENTIN [Concomitant]
  6. MAGNESIUM OXIDE (MAGNESIUM OXIDE) [Concomitant]
  7. VITAMIN D [Concomitant]
  8. HIZENTRA [Suspect]
     Indication: IMMUNODEFICIENCY COMMON VARIABLE
     Dosage: (16 G 1X/WEEK, 16 G (80 ML) VIA 5-6 SITES OVER 1-2 HOURS SUBCUTANEOUS)
     Route: 058
     Dates: start: 20120131
  9. HIZENTRA [Suspect]
     Indication: IMMUNODEFICIENCY COMMON VARIABLE
     Dosage: (16 G 1X/WEEK, 16 G (80 ML) VIA 5-6 SITES OVER 1-2 HOURS SUBCUTANEOUS)
     Route: 058
     Dates: start: 20120307
  10. MAXALT [Concomitant]

REACTIONS (5)
  - DRUG DOSE OMISSION [None]
  - BEHCET'S SYNDROME [None]
  - CONVULSION [None]
  - FATIGUE [None]
  - INFLUENZA LIKE ILLNESS [None]
